FAERS Safety Report 4761007-8 (Version None)
Quarter: 2005Q3

REPORT INFORMATION
  Report Type: 
  Country: None (occurrence: None)
  Receive Date: 20050901
  Receipt Date: 20050822
  Transmission Date: 20060218
  Serious: Yes (Other)
  Sender: FDA-Public Use
  Company Number: US-2005-017983

PATIENT
  Sex: Male

DRUGS (2)
  1. LEUKINE [Suspect]
     Indication: HAEMATOPOIETIC STEM CELL MOBILISATION
  2. VACCINES ( ) [Suspect]
     Indication: PROSTATE CANCER

REACTIONS (1)
  - MYOCARDIAL ISCHAEMIA [None]
